FAERS Safety Report 6922600-7 (Version None)
Quarter: 2010Q3

REPORT INFORMATION
  Report Type: 
  Country: None (occurrence: None)
  Receive Date: 20100813
  Receipt Date: 20100730
  Transmission Date: 20110219
  Serious: Yes (Other)
  Sender: FDA-Public Use
  Company Number: PHHY2010US51209

PATIENT
  Sex: Female

DRUGS (1)
  1. AREDIA [Suspect]
     Indication: RESORPTION BONE INCREASED
     Dosage: 90 MG, QMO
     Route: 042
     Dates: start: 20021217, end: 20040726

REACTIONS (17)
  - BONE PAIN [None]
  - CATARACT [None]
  - CENTRAL VENOUS CATHETERISATION [None]
  - CHRONIC SINUSITIS [None]
  - DRY MOUTH [None]
  - GINGIVAL DISORDER [None]
  - HYPERPHAGIA [None]
  - HYPOXIA [None]
  - INTERVERTEBRAL DISC DEGENERATION [None]
  - LUNG DISORDER [None]
  - LYMPH NODE CALCIFICATION [None]
  - POLYDIPSIA [None]
  - RASH [None]
  - TACHYPNOEA [None]
  - THIRST [None]
  - VISUAL IMPAIRMENT [None]
  - WEIGHT ABNORMAL [None]
